FAERS Safety Report 6516572-7 (Version None)
Quarter: 2009Q4

REPORT INFORMATION
  Report Type: 
  Country: None (occurrence: None)
  Receive Date: 20091223
  Receipt Date: 20091217
  Transmission Date: 20100525
  Serious: Yes (Other)
  Sender: FDA-Public Use
  Company Number: US-ELI_LILLY_AND_COMPANY-US200912004192

PATIENT
  Sex: Female

DRUGS (1)
  1. HUMULIN R [Suspect]
     Indication: DIABETES MELLITUS
     Dosage: UNK, AS NEEDED

REACTIONS (4)
  - BLOOD GLUCOSE INCREASED [None]
  - BREAST CANCER [None]
  - LYMPHOMA [None]
  - MALAISE [None]
